FAERS Safety Report 12697377 (Version 1)
Quarter: 2016Q3

REPORT INFORMATION
  Report Type: Spontaneous
  Country: US (occurrence: None)
  Receive Date: 20160829
  Receipt Date: 20160829
  Transmission Date: 20161109
  Serious: Yes (Other)
  Sender: FDA-Public Use
  Company Number: None

PATIENT
  Age: 71 Year
  Sex: Male
  Weight: 68.9 kg

DRUGS (3)
  1. JADENU [Suspect]
     Active Substance: DEFERASIROX
     Indication: PACKED RED BLOOD CELL TRANSFUSION
     Route: 048
     Dates: start: 20160815, end: 20160827
  2. JADENU [Suspect]
     Active Substance: DEFERASIROX
     Indication: HAEMOCHROMATOSIS
     Route: 048
     Dates: start: 20160815, end: 20160827
  3. IMBRUVICA [Suspect]
     Active Substance: IBRUTINIB
     Indication: WALDENSTROM^S MACROGLOBULINAEMIA
     Route: 048
     Dates: start: 20160701, end: 20160827

REACTIONS (4)
  - Cognitive disorder [None]
  - Daydreaming [None]
  - Amnesia [None]
  - Memory impairment [None]

NARRATIVE: CASE EVENT DATE: 20160827
